FAERS Safety Report 6998551-9 (Version None)
Quarter: 2010Q3

REPORT INFORMATION
  Report Type: 
  Country: None (occurrence: None)
  Receive Date: 20100920
  Receipt Date: 20100623
  Transmission Date: 20110219
  Serious: Yes (Hospitalization, Other)
  Sender: FDA-Public Use
  Company Number: US-ASTRAZENECA-2010SE12410

PATIENT
  Age: 28335 Day
  Sex: Female
  Weight: 46.7 kg

DRUGS (6)
  1. SEROQUEL [Suspect]
     Indication: DEMENTIA
     Route: 048
     Dates: start: 20100223, end: 20100224
  2. ARICEPT [Concomitant]
  3. METFORMIN [Concomitant]
     Route: 048
     Dates: start: 20011007
  4. LIPITOR [Concomitant]
     Route: 048
     Dates: start: 20000303
  5. ZOLOFT [Concomitant]
     Indication: DEPRESSION
     Route: 048
     Dates: start: 20100202
  6. PERCOCET [Concomitant]
     Indication: ARTHRALGIA
     Route: 048
     Dates: start: 19990302

REACTIONS (9)
  - AGGRESSION [None]
  - AGITATION [None]
  - CONFUSIONAL STATE [None]
  - CYSTITIS [None]
  - DEHYDRATION [None]
  - HYPERTENSION [None]
  - MENTAL STATUS CHANGES [None]
  - PARANOIA [None]
  - SUICIDAL IDEATION [None]
